FAERS Safety Report 7510074-7 (Version None)
Quarter: 2011Q2

REPORT INFORMATION
  Report Type: 
  Country: None (occurrence: None)
  Receive Date: 20110527
  Receipt Date: 20110518
  Transmission Date: 20111010
  Serious: Yes (Hospitalization)
  Sender: FDA-Public Use
  Company Number: AU-ABBOTT-10P-008-0628145-00

PATIENT
  Sex: Female
  Weight: 105 kg

DRUGS (21)
  1. OXYCODONE HCL [Concomitant]
     Indication: PAIN
     Dates: start: 20070101
  2. ALDACTONE [Concomitant]
     Indication: HYPERTENSION
     Dates: start: 20060101
  3. NORTRIPTYLINE HCL [Concomitant]
     Indication: PAIN
     Dates: start: 20070101
  4. ASPIRIN [Concomitant]
     Indication: PAIN
     Dates: start: 20090101
  5. CALCITRIOL [Concomitant]
     Indication: PROPHYLAXIS
     Dates: start: 20090101
  6. HUMIRA [Suspect]
     Indication: CROHN'S DISEASE
     Route: 058
     Dates: start: 20071221
  7. ACETAMINOPHEN [Concomitant]
     Indication: PAIN
     Dates: start: 20090101
  8. BETALOC [Concomitant]
     Indication: HYPERTENSION
     Dates: start: 20090101
  9. RAMIPRIL [Concomitant]
     Indication: HYPERTENSION
  10. MICARDIS [Concomitant]
     Indication: HYPERTENSION
     Dates: start: 20090901
  11. CRESTOR [Concomitant]
     Indication: BLOOD CHOLESTEROL INCREASED
     Dates: start: 20100101
  12. MAXOLON [Concomitant]
     Indication: PROPHYLAXIS OF NAUSEA AND VOMITING
     Dates: start: 20070101
  13. DURAGESIC-100 [Concomitant]
     Indication: PAIN
     Dosage: 50-100 MCG/HR
     Route: 061
     Dates: start: 20070101
  14. LANSOPRAZOLE [Concomitant]
     Indication: OESOPHAGITIS
     Dates: start: 19910101
  15. FOLIC ACID [Concomitant]
     Indication: PROPHYLAXIS
     Dates: start: 20090101
  16. FLAGYL [Concomitant]
     Indication: INFECTION
     Dates: start: 20090216, end: 20091201
  17. MAGNESIUM SULFATE [Concomitant]
     Indication: MAGNESIUM DEFICIENCY
     Dates: start: 20090101
  18. MAGNESIUM SULFATE [Concomitant]
     Indication: PROPHYLAXIS
  19. FLUOXETINE [Concomitant]
     Indication: DEPRESSION
     Dates: start: 20090901
  20. CELESTONE [Concomitant]
     Indication: PAIN
     Dates: start: 20070101
  21. CIPROFLOXACIN [Concomitant]
     Indication: INFECTION
     Dates: start: 20090216, end: 20100301

REACTIONS (3)
  - DIARRHOEA INFECTIOUS [None]
  - RECTAL ABSCESS [None]
  - CELLULITIS [None]
